FAERS Safety Report 6349492-1 (Version None)
Quarter: 2009Q3

REPORT INFORMATION
  Report Type: 
  Country: None (occurrence: None)
  Receive Date: 20090911
  Receipt Date: 20080928
  Transmission Date: 20100115
  Serious: Yes (Other)
  Sender: FDA-Public Use
  Company Number: IT-ABBOTT-09P-083-0596361-00

PATIENT
  Sex: Female

DRUGS (3)
  1. ERYTHROMYCIN [Suspect]
     Indication: TOOTH ABSCESS
     Route: 048
     Dates: start: 20080929, end: 20080929
  2. VALERIANA OFFICINALIS EXTRACT [Concomitant]
     Indication: DRUG USE FOR UNKNOWN INDICATION
  3. NIMESULIDE [Concomitant]
     Indication: DRUG USE FOR UNKNOWN INDICATION
     Route: 048

REACTIONS (2)
  - HYPOAESTHESIA ORAL [None]
  - LARYNGEAL OEDEMA [None]
